FAERS Safety Report 4412676-3 (Version None)
Quarter: 2004Q2

REPORT INFORMATION
  Report Type: 
  Country: None (occurrence: None)
  Receive Date: 20040630
  Receipt Date: 20040315
  Transmission Date: 20050107
  Serious: No
  Sender: FDA-Public Use
  Company Number: 04P-163-0253578-00

PATIENT
  Age: 57 Year
  Sex: Female

DRUGS (7)
  1. HUMIRA [Suspect]
     Indication: RHEUMATOID ARTHRITIS
     Dosage: 40 MG, 1 IN 2 WK, SUBCUTANEOUS
     Route: 058
     Dates: start: 20040201
  2. VERAPAMIL [Concomitant]
  3. ACETAMINOPHEN [Concomitant]
  4. COMBIVENT [Concomitant]
  5. SERTRALINE HCL [Concomitant]
  6. ALPRAZOLAM [Concomitant]
  7. RISPERIDONE [Concomitant]

REACTIONS (1)
  - FUNGAL INFECTION [None]
